FAERS Safety Report 4981922-X (Version None)
Quarter: 2006Q2

REPORT INFORMATION
  Report Type: 
  Country: None (occurrence: None)
  Receive Date: 20060425
  Receipt Date: 20050315
  Transmission Date: 20061013
  Serious: Yes (Hospitalization)
  Sender: FDA-Public Use
  Company Number: US-MERCK-0503USA03254

PATIENT
  Age: 67 Year
  Sex: Female
  Weight: 50 kg

DRUGS (18)
  1. VIOXX [Suspect]
     Indication: ARTHRALGIA
     Route: 048
     Dates: start: 20010401, end: 20010701
  2. VIOXX [Suspect]
     Route: 048
     Dates: start: 20040517, end: 20041001
  3. VIOXX [Suspect]
     Indication: ARTHRITIS
     Route: 048
     Dates: start: 20010401, end: 20010701
  4. VIOXX [Suspect]
     Route: 048
     Dates: start: 20040517, end: 20041001
  5. AMBIEN [Concomitant]
     Route: 065
  6. ASPIRIN [Concomitant]
     Route: 065
  7. NIACIN [Concomitant]
     Route: 065
  8. POTASSIUM (UNSPECIFIED) [Concomitant]
     Route: 065
  9. PROTONIX [Concomitant]
     Route: 065
  10. ZYRTEC [Concomitant]
     Route: 065
  11. ZEBETA [Concomitant]
     Route: 048
  12. AMITRIPTYLINE HYDROCHLORIDE [Concomitant]
     Route: 048
  13. ESTRATEST [Concomitant]
     Route: 048
  14. ESTRATEST [Concomitant]
     Route: 048
  15. ZOCOR [Concomitant]
     Route: 048
  16. AVAPRO [Concomitant]
     Route: 048
  17. [THERAPY UNSPECIFIED] [Concomitant]
     Route: 048
  18. MOTRIN [Concomitant]
     Route: 065

REACTIONS (7)
  - ANEURYSM [None]
  - CARDIAC DISORDER [None]
  - CARDIAC FAILURE CONGESTIVE [None]
  - DRUG INEFFECTIVE [None]
  - LOSS OF CONSCIOUSNESS [None]
  - TRANSIENT ISCHAEMIC ATTACK [None]
  - VERTIGO [None]
